FAERS Safety Report 15470144 (Version 3)
Quarter: 2021Q2

REPORT INFORMATION
  Report Type: Report from Study
  Country: US (occurrence: US)
  Receive Date: 20181005
  Receipt Date: 20210618
  Transmission Date: 20210716
  Serious: No
  Sender: FDA-Public Use
  Company Number: US-SA-2018SA273978

PATIENT
  Age: 42 Year
  Sex: Female

DRUGS (3)
  1. ZYRTEC [Concomitant]
     Active Substance: CETIRIZINE HYDROCHLORIDE
  2. WELLBUTRIN [Concomitant]
     Active Substance: BUPROPION HYDROCHLORIDE
  3. TERIFLUNOMIDE. [Suspect]
     Active Substance: TERIFLUNOMIDE
     Indication: MULTIPLE SCLEROSIS
     Dosage: 14 MG, QD
     Route: 048
     Dates: start: 20160805, end: 20190215

REACTIONS (10)
  - Migraine [Unknown]
  - Peripheral swelling [Unknown]
  - Depressed mood [Unknown]
  - Visual impairment [Unknown]
  - Bladder spasm [Unknown]
  - Balance disorder [Unknown]
  - Nausea [Unknown]
  - Alopecia [Unknown]
  - Headache [Unknown]
  - Drug ineffective [Unknown]
